FAERS Safety Report 4556681-5 (Version None)
Quarter: 2005Q1

REPORT INFORMATION
  Report Type: 
  Country: None (occurrence: None)
  Receive Date: 20050120
  Receipt Date: 20050112
  Transmission Date: 20050727
  Serious: Yes (Hospitalization)
  Sender: FDA-Public Use
  Company Number: SE-BRISTOL-MYERS SQUIBB COMPANY-12827010

PATIENT
  Age: 26 Year
  Sex: Male

DRUGS (16)
  1. ENDOXAN [Suspect]
     Indication: SYSTEMIC LUPUS ERYTHEMATOSUS
     Dates: start: 20040301
  2. MABTHERA [Suspect]
     Indication: SYSTEMIC LUPUS ERYTHEMATOSUS
     Dates: start: 20040301
  3. METHYLPREDNISOLONE [Suspect]
     Indication: SYSTEMIC LUPUS ERYTHEMATOSUS
     Dates: start: 20040301
  4. LANSOPRAZOLE [Concomitant]
  5. COZAAR [Concomitant]
  6. ACETAMINOPHEN [Concomitant]
  7. PLAQUENIL [Concomitant]
  8. BEHEPAN [Concomitant]
  9. STESOLID [Concomitant]
  10. SODIUM PICOSULFATE [Concomitant]
  11. PREDNISOLONE [Concomitant]
  12. ADALAT [Concomitant]
  13. LACTULOSE [Concomitant]
  14. DURAGESIC [Concomitant]
  15. KETOGAN [Concomitant]
  16. CALCICHEW [Concomitant]

REACTIONS (12)
  - ANGIONEUROTIC OEDEMA [None]
  - ATRIAL FIBRILLATION [None]
  - BLOOD ALBUMIN DECREASED [None]
  - BLOOD CREATININE INCREASED [None]
  - BLOOD PRESSURE INCREASED [None]
  - HAEMOGLOBIN DECREASED [None]
  - HYPERKALAEMIA [None]
  - MYELODYSPLASTIC SYNDROME [None]
  - OEDEMA [None]
  - PROTHROMBIN TIME SHORTENED [None]
  - RESPIRATORY DISTRESS [None]
  - THROMBOTIC MICROANGIOPATHY [None]
